FAERS Safety Report 6555147-0 (Version None)
Quarter: 2010Q1

REPORT INFORMATION
  Report Type: 
  Country: None (occurrence: None)
  Receive Date: 20100126
  Receipt Date: 20100126
  Transmission Date: 20100710
  Serious: Yes (Other)
  Sender: FDA-Public Use
  Company Number: None

PATIENT
  Sex: Male
  Weight: 47.6277 kg

DRUGS (10)
  1. AZITHROMYCIN [Suspect]
     Indication: PNEUMONIA
     Dosage: 500MG IV Q12H
     Route: 042
     Dates: start: 20100115, end: 20100125
  2. CEFOTETAN [Suspect]
     Indication: PNEUMONIA
     Dosage: 2MG IV
     Route: 042
     Dates: start: 20100115, end: 20100127
  3. HYOSCYAMINE [Concomitant]
  4. ZANTAC [Concomitant]
  5. OSCAL [Concomitant]
  6. CLARITIN [Concomitant]
  7. PREDNISONE [Concomitant]
  8. OXYCONTIN [Concomitant]
  9. FLAGYL [Concomitant]
  10. BENADRYL [Concomitant]

REACTIONS (1)
  - DEAFNESS [None]
